FAERS Safety Report 4971968-X (Version None)
Quarter: 2006Q2

REPORT INFORMATION
  Report Type: 
  Country: None (occurrence: None)
  Receive Date: 20060412
  Receipt Date: 20060412
  Transmission Date: 20061013
  Serious: Yes (Hospitalization)
  Sender: FDA-Public Use
  Company Number: None

PATIENT
  Age: 51 Year
  Sex: Female
  Weight: 94.4 kg

DRUGS (9)
  1. PLAVIX [Suspect]
     Dosage: 75 MG DAILY PO
     Route: 048
  2. ASPIRIN [Suspect]
     Dosage: 81 MG DAILY PO
     Route: 048
  3. TRAMADOL HCL [Concomitant]
  4. FUROSEMIDE [Concomitant]
  5. AMITRIPTYLINE [Concomitant]
  6. DARVOCET [Concomitant]
  7. HUMULIN N [Concomitant]
  8. HUMULIN 70/30 [Concomitant]
  9. COREG [Concomitant]

REACTIONS (2)
  - GASTROINTESTINAL HAEMORRHAGE [None]
  - OCCULT BLOOD POSITIVE [None]
